FAERS Safety Report 5503463-3 (Version None)
Quarter: 2007Q4

REPORT INFORMATION
  Report Type: 
  Country: None (occurrence: None)
  Receive Date: 20071031
  Receipt Date: 20071019
  Transmission Date: 20080405
  Serious: Yes (Other)
  Sender: FDA-Public Use
  Company Number: US-PFIZER INC-2007089776

PATIENT
  Sex: Male
  Weight: 84.09 kg

DRUGS (3)
  1. CHANTIX [Suspect]
     Indication: SMOKING CESSATION THERAPY
     Dates: start: 20061101, end: 20070101
  2. NEXIUM [Concomitant]
  3. MELOXICAM [Concomitant]

REACTIONS (6)
  - ANXIETY [None]
  - BLOOD GLUCOSE INCREASED [None]
  - DEPRESSION [None]
  - HYPERTENSION [None]
  - WEIGHT DECREASED [None]
  - WEIGHT INCREASED [None]
